FAERS Safety Report 5757855-8 (Version None)
Quarter: 2008Q2

REPORT INFORMATION
  Report Type: 
  Country: None (occurrence: None)
  Receive Date: 20080603
  Receipt Date: 20080530
  Transmission Date: 20081010
  Serious: Yes (Other)
  Sender: FDA-Public Use
  Company Number: PHEH2005US11786

PATIENT
  Sex: Female
  Weight: 74.83 kg

DRUGS (3)
  1. VIVELLE-DOT [Suspect]
     Indication: HORMONE REPLACEMENT THERAPY
     Dosage: 0.1 MG AND 0.05 MG PATCHES, 2 X WEEK
     Route: 062
     Dates: start: 19950809
  2. VIVELLE-DOT [Suspect]
     Indication: MENOPAUSE
     Dosage: 0.375 MG/DAY, 2X WEEK
     Route: 062
     Dates: start: 20050420
  3. XANAX [Concomitant]
     Indication: ANXIETY
     Dosage: 1 MG, QD
     Route: 048
     Dates: start: 19950801

REACTIONS (18)
  - AMNESIA [None]
  - ANXIETY [None]
  - BREAST MASS [None]
  - CRYING [None]
  - DIZZINESS [None]
  - DRUG INEFFECTIVE [None]
  - DRY EYE [None]
  - HOT FLUSH [None]
  - HUNGER [None]
  - HYPOTHYROIDISM [None]
  - IRRITABILITY [None]
  - LIBIDO DECREASED [None]
  - MAMMOGRAM ABNORMAL [None]
  - MENOPAUSAL SYMPTOMS [None]
  - MOOD ALTERED [None]
  - NAUSEA [None]
  - NERVOUSNESS [None]
  - TREMOR [None]
